FAERS Safety Report 5881937-3 (Version None)
Quarter: 2008Q3

REPORT INFORMATION
  Report Type: 
  Country: None (occurrence: None)
  Receive Date: 20080912
  Receipt Date: 20080716
  Transmission Date: 20090109
  Serious: No
  Sender: FDA-Public Use
  Company Number: US-ABBOTT-08P-163-0463261-00

PATIENT
  Sex: Female
  Weight: 52.664 kg

DRUGS (6)
  1. HUMIRA [Suspect]
     Indication: CROHN'S DISEASE
     Route: 058
     Dates: start: 20080602
  2. SERTRALINE [Concomitant]
     Indication: DEPRESSION
     Route: 048
  3. MESALAMINE [Concomitant]
     Indication: CROHN'S DISEASE
     Dosage: 250MG X 4/QID
     Route: 048
  4. PREDNISONE TAB [Concomitant]
     Indication: INFLAMMATION
     Route: 048
  5. CONTRACEPTIVES NOS [Concomitant]
     Indication: CONTRACEPTION
     Route: 048
  6. VIGRAN [Concomitant]
     Indication: VITAMIN SUPPLEMENTATION
     Route: 048

REACTIONS (3)
  - ACCIDENTAL EXPOSURE [None]
  - INJECTION SITE SWELLING [None]
  - INJECTION SITE URTICARIA [None]
